FAERS Safety Report 16997754 (Version 7)
Quarter: 2020Q1

REPORT INFORMATION
  Report Type: Report from Study
  Country: CO (occurrence: CO)
  Receive Date: 20191106
  Receipt Date: 20200312
  Transmission Date: 20200409
  Serious: Yes (Other)
  Sender: FDA-Public Use
  Company Number: CO-AMGEN-COLSL2019153330

PATIENT
  Age: 57 Year
  Sex: Female

DRUGS (6)
  1. VECTIBIX [Suspect]
     Active Substance: PANITUMUMAB
     Indication: COLORECTAL CANCER METASTATIC
     Dosage: 522 MILLIGRAM, Q2WK
     Route: 042
     Dates: start: 20190429, end: 201909
  2. VECTIBIX [Suspect]
     Active Substance: PANITUMUMAB
     Dosage: 522 MILLIGRAM, Q2WK
     Route: 042
     Dates: start: 20200115, end: 202001
  3. VECTIBIX [Suspect]
     Active Substance: PANITUMUMAB
     Dosage: 360 MILLIGRAM, Q2WK
     Route: 042
     Dates: start: 20200130
  4. VECTIBIX [Suspect]
     Active Substance: PANITUMUMAB
     Dosage: 500 MILLIGRAM, Q2WK
     Route: 042
     Dates: start: 20190924, end: 20190924
  5. VECTIBIX [Suspect]
     Active Substance: PANITUMUMAB
     Dosage: 520 MILLIGRAM, Q2WK
     Route: 042
     Dates: start: 20191008, end: 2019
  6. VECTIBIX [Suspect]
     Active Substance: PANITUMUMAB
     Dosage: 522 MILLIGRAM, Q2WK
     Route: 042
     Dates: start: 20191105, end: 2019

REACTIONS (9)
  - Thrombocytopenia [Recovering/Resolving]
  - Rash [Recovering/Resolving]
  - Thrombocytosis [Recovering/Resolving]
  - Abdominal pain upper [Recovering/Resolving]
  - Musculoskeletal pain [Recovering/Resolving]
  - Oral discomfort [Recovering/Resolving]
  - Lip swelling [Recovering/Resolving]
  - Erythema [Recovering/Resolving]
  - Flank pain [Not Recovered/Not Resolved]

NARRATIVE: CASE EVENT DATE: 20190910
